FAERS Safety Report 14188247 (Version 1)
Quarter: 2017Q4

REPORT INFORMATION
  Report Type: Spontaneous
  Country: FR (occurrence: FR)
  Receive Date: 20171114
  Receipt Date: 20171114
  Transmission Date: 20180321
  Serious: Yes (Other)
  Sender: FDA-Public Use
  Company Number: FR-MYLANLABS-2017M1070988

PATIENT
  Age: 1 Year
  Sex: Female
  Weight: 11 kg

DRUGS (1)
  1. PREDNISOLONE MYLAN 20 MG, COMPRIM? ORODISPERSIBLE [Suspect]
     Active Substance: PREDNISOLONE
     Indication: COUGH
     Dosage: 1 DF, ONCE
     Route: 048
     Dates: start: 20171010

REACTIONS (4)
  - Crying [Recovered/Resolved]
  - Medication error [Recovered/Resolved]
  - Agitation [Recovered/Resolved]
  - Incorrect dose administered [Recovered/Resolved]

NARRATIVE: CASE EVENT DATE: 20171010
